FAERS Safety Report 5802597-3 (Version None)
Quarter: 2008Q2

REPORT INFORMATION
  Report Type: 
  Country: None (occurrence: None)
  Receive Date: 20080627
  Receipt Date: 20080512
  Transmission Date: 20081010
  Serious: Yes (Other)
  Sender: FDA-Public Use
  Company Number: 48353

PATIENT
  Sex: Male
  Weight: 66 kg

DRUGS (1)
  1. MIDAZOLAM HCL [Suspect]
     Indication: SEDATION
     Dosage: 2MG IV X 1
     Route: 042

REACTIONS (1)
  - SOMNOLENCE [None]
